FAERS Safety Report 18517940 (Version 2)
Quarter: 2020Q4

REPORT INFORMATION
  Report Type: Spontaneous
  Country: US (occurrence: US)
  Receive Date: 20201118
  Receipt Date: 20201123
  Transmission Date: 20210114
  Serious: No
  Sender: FDA-Public Use
  Company Number: US-PFIZER INC-2020453839

PATIENT
  Age: 77 Year
  Sex: Male
  Weight: 76.2 kg

DRUGS (4)
  1. RETACRIT [Suspect]
     Active Substance: EPOETIN ALFA-EPBX
     Indication: CHRONIC KIDNEY DISEASE
  2. RETACRIT [Suspect]
     Active Substance: EPOETIN ALFA-EPBX
     Indication: ANAEMIA
     Dosage: 20000 IU, EVERY OTHER MONTH OR EVERY 3 MONTHS
     Route: 058
     Dates: start: 202002
  3. NUCALA [Concomitant]
     Active Substance: MEPOLIZUMAB
     Indication: DIABETES MELLITUS
     Dosage: 800 MG, 1X/DAY
     Route: 048
     Dates: start: 20201006
  4. SEVELAMER CARBONATE. [Concomitant]
     Active Substance: SEVELAMER CARBONATE
     Indication: DIABETES MELLITUS
     Dosage: 800 MG, 1X/DAY
     Route: 048
     Dates: start: 20201006

REACTIONS (5)
  - Product use issue [Unknown]
  - Erythema [Unknown]
  - Off label use [Unknown]
  - Rash [Not Recovered/Not Resolved]
  - Drug eruption [Unknown]

NARRATIVE: CASE EVENT DATE: 202002
